FAERS Safety Report 8916106 (Version 2)
Quarter: 2012Q4

REPORT INFORMATION
  Report Type: 
  Country: FR (occurrence: FR)
  Receive Date: 20121120
  Receipt Date: 20121126
  Transmission Date: 20130627
  Serious: Yes (Death, Hospitalization)
  Sender: FDA-Public Use
  Company Number: PHHY2012FR104957

PATIENT
  Age: 48 Year
  Sex: Female

DRUGS (13)
  1. VINORELBINE [Suspect]
     Indication: NON-HODGKIN^S LYMPHOMA UNSPECIFIED HISTOLOGY AGGRESSIVE REFRACTORY
     Dosage: 30 mg, QD, cyclic
     Route: 042
     Dates: start: 20120823, end: 20120823
  2. HOLOXAN [Suspect]
     Indication: NON-HODGKIN^S LYMPHOMA UNSPECIFIED HISTOLOGY AGGRESSIVE REFRACTORY
     Dosage: 3000 mg, QD, cyclic
     Route: 042
     Dates: start: 20120823, end: 20120828
  3. HOLOXAN [Suspect]
     Dosage: 3000 mg, QD, cyclic, within 2 hours
     Route: 042
     Dates: start: 20120828
  4. SOLUMEDROL(METHYLPREDNISOLONE SODIUM SUCCINATE) INFUSION [Suspect]
     Indication: NON-HODGKIN^S LYMPHOMA UNSPECIFIED HISTOLOGY AGGRESSIVE REFRACTORY
     Dosage: 100 mg, QD, cyclic
     Route: 042
     Dates: start: 20120823, end: 20120828
  5. SOLUMEDROL(METHYLPREDNISOLONE SODIUM SUCCINATE) INFUSION [Suspect]
     Dosage: 100 mg, QD, cyclic
     Route: 042
     Dates: start: 20120828
  6. PRIMPERAN [Suspect]
     Indication: PROPHYLAXIS
     Dosage: 80 mg, QD, cyclic
     Route: 042
     Dates: start: 20120823, end: 20120828
  7. PRIMPERAN [Suspect]
     Dosage: 80 mg, QD, cyclic, on 24 hour duration
     Route: 042
     Dates: start: 20120828
  8. UROMITEXAN [Suspect]
     Indication: PROPHYLAXIS
     Dosage: 3000 mg, QD, cyclic
     Route: 042
     Dates: start: 20120823, end: 20120828
  9. GEMCITABINE [Suspect]
     Indication: NON-HODGKIN^S LYMPHOMA UNSPECIFIED HISTOLOGY AGGRESSIVE REFRACTORY
     Dosage: 1200 mg, QD, cyclic
     Route: 042
     Dates: start: 20120823, end: 20120823
  10. ZOPHREN [Suspect]
     Dosage: 8 mg, UNK
     Route: 042
     Dates: start: 20120823, end: 20120828
  11. ZOPHREN [Suspect]
     Dosage: 8 mg, UNK
     Route: 042
     Dates: start: 20120828
  12. NEURONTIN [Concomitant]
     Dosage: 100 mg, UNK
  13. MORFINE HCL [Concomitant]

REACTIONS (10)
  - Bacterial sepsis [Fatal]
  - Blood creatinine decreased [Unknown]
  - Encephalopathy [Unknown]
  - Blood alkaline phosphatase increased [Unknown]
  - Gamma-glutamyltransferase increased [Unknown]
  - Neuropathy peripheral [Unknown]
  - Agitation [Recovering/Resolving]
  - Incoherent [Recovering/Resolving]
  - Psychomotor skills impaired [Recovering/Resolving]
  - Pain [Unknown]
